FAERS Safety Report 9351350 (Version 2)
Quarter: 2013Q3

REPORT INFORMATION
  Report Type: Other
  Country: US (occurrence: US)
  Receive Date: 20130617
  Receipt Date: 20130816
  Transmission Date: 20140515
  Serious: Yes (Death, Hospitalization)
  Sender: FDA-Public Use
  Company Number: US-SHIRE-ALL1-2013-03998

PATIENT
  Age: 66 Year
  Sex: Male
  Weight: 95.9 kg

DRUGS (11)
  1. FOSRENOL [Suspect]
     Indication: HYPERPHOSPHATAEMIA
     Dosage: 1000 MG, 3X/DAY:TID (WITH MEALS)
     Route: 048
     Dates: start: 201301
  2. CLONIDINE [Concomitant]
     Indication: PRODUCT USED FOR UNKNOWN INDICATION
     Dosage: 0.1 MG, 2X/DAY:BID
     Route: 065
     Dates: start: 20111018
  3. CRESTOR [Concomitant]
     Indication: PRODUCT USED FOR UNKNOWN INDICATION
     Dosage: 20 MG, 1X/DAY:QD (BEDTIME)
     Route: 065
     Dates: start: 20111018
  4. LIDOCAINE W/PRILOCAINE [Concomitant]
     Indication: INJECTION SITE PAIN
     Dosage: 2.5 %, AS REQ^D
     Route: 061
     Dates: start: 20120308
  5. METOPROLOL [Concomitant]
     Indication: PRODUCT USED FOR UNKNOWN INDICATION
     Dosage: 100 MG, 3X/DAY:TID
     Route: 065
     Dates: start: 20120308
  6. ISOSORBIDE [Concomitant]
     Indication: PRODUCT USED FOR UNKNOWN INDICATION
     Dosage: 60 MG, 1X/DAY:QD
     Route: 065
     Dates: start: 20120403
  7. PANTOPRAZOLE [Concomitant]
     Indication: PRODUCT USED FOR UNKNOWN INDICATION
     Dosage: 40 MG, 1X/DAY:QD
     Route: 065
     Dates: start: 20120403
  8. MEXILETINE [Concomitant]
     Indication: PRODUCT USED FOR UNKNOWN INDICATION
     Dosage: 200 MG, OTHER (EVERY 8 HOURS)
     Route: 065
     Dates: start: 20120403
  9. ALBUTEROL W/IPRATROPIUM [Concomitant]
     Indication: PRODUCT USED FOR UNKNOWN INDICATION
     Dosage: 0.83 %, AS REQ^D
     Route: 055
     Dates: start: 20120403
  10. COREG [Concomitant]
     Indication: PRODUCT USED FOR UNKNOWN INDICATION
     Dosage: 3.125 MG, 2X/DAY:BID
     Route: 065
     Dates: start: 20121011
  11. ASPIRIN [Concomitant]
     Indication: PRODUCT USED FOR UNKNOWN INDICATION
     Dosage: 81 MG, 1X/DAY:QD
     Route: 065
     Dates: start: 20130423

REACTIONS (2)
  - Pneumococcal sepsis [Fatal]
  - Pneumonia [Fatal]
